FAERS Safety Report 12835675 (Version 4)
Quarter: 2017Q2

REPORT INFORMATION
  Report Type: Report from Study
  Country: DE (occurrence: DE)
  Receive Date: 20161011
  Receipt Date: 20170428
  Transmission Date: 20170830
  Serious: Yes (Hospitalization)
  Sender: FDA-Public Use
  Company Number: PHHY2016DE139176

PATIENT
  Sex: Female

DRUGS (7)
  1. EUTHYROX [Concomitant]
     Active Substance: LEVOTHYROXINE SODIUM
     Indication: HYPOTHYROIDISM
     Dosage: UNK UNK, QD
     Route: 065
     Dates: start: 19900101
  2. MCP [Concomitant]
     Active Substance: METOCLOPRAMIDE HYDROCHLORIDE
     Indication: NAUSEA
     Dosage: 20 TO 40 ML, QD
     Route: 065
     Dates: start: 20150916
  3. CARVEDILOL. [Concomitant]
     Active Substance: CARVEDILOL
     Indication: HYPERTENSION
     Dosage: 25 MG, QD
     Route: 065
     Dates: start: 20110505
  4. EPLERENONE. [Concomitant]
     Active Substance: EPLERENONE
     Indication: CARDIAC FAILURE
     Dosage: UNK UNK, QD
     Route: 065
     Dates: start: 20151023
  5. HCT GAMMA [Concomitant]
     Indication: CARDIAC FAILURE
     Dosage: UNK UNK, QD
     Route: 065
     Dates: start: 20101109
  6. TASIGNA [Suspect]
     Active Substance: NILOTINIB
     Indication: CHRONIC MYELOID LEUKAEMIA
     Dosage: 600 MG, QD
     Route: 065
     Dates: start: 20150916
  7. EPOETINA ALFA [Concomitant]
     Indication: ANAEMIA
     Dosage: 10000 OT, UNK
     Route: 065
     Dates: start: 20160623

REACTIONS (1)
  - Personality change [Recovered/Resolved]

NARRATIVE: CASE EVENT DATE: 20151210
